FAERS Safety Report 4565057-6 (Version None)
Quarter: 2005Q1

REPORT INFORMATION
  Report Type: 
  Country: None (occurrence: None)
  Receive Date: 20050112
  Receipt Date: 20050112
  Transmission Date: 20050727
  Serious: Yes (Other)
  Sender: FDA-Public Use
  Company Number: None

PATIENT
  Age: 71 Year
  Sex: Male
  Weight: 99.7913 kg

DRUGS (1)
  1. DILANTIN [Suspect]
     Dosage: TWO BID

REACTIONS (1)
  - DRUG LEVEL BELOW THERAPEUTIC [None]
